FAERS Safety Report 20769650 (Version 1)
Quarter: 2022Q2

REPORT INFORMATION
  Report Type: Other
  Country: None (occurrence: ES)
  Receive Date: 20220429
  Receipt Date: 20220429
  Transmission Date: 20220721
  Serious: Yes (Other)
  Sender: FDA-Public Use
  Company Number: ES-B.Braun Medical Inc.-2128297

PATIENT
  Age: 49 Year
  Sex: Male

DRUGS (5)
  1. CEFEPIME HYDROCHLORIDE AND DEXTROSE [Suspect]
     Active Substance: CEFEPIME HYDROCHLORIDE
  2. PRAZIQUANTEL [Suspect]
     Active Substance: PRAZIQUANTEL
  3. RIFAMPIN [Suspect]
     Active Substance: RIFAMPIN
  4. CLOXACILLIN [Suspect]
     Active Substance: CLOXACILLIN
  5. VANCOMYCIN [Suspect]
     Active Substance: VANCOMYCIN

REACTIONS (1)
  - Hepatocellular injury [Unknown]
